FAERS Safety Report 20508360 (Version 1)
Quarter: 2022Q1

REPORT INFORMATION
  Report Type: Spontaneous
  Country: JP (occurrence: JP)
  Receive Date: 20220223
  Receipt Date: 20220223
  Transmission Date: 20220423
  Serious: Yes (Death, Other)
  Sender: FDA-Public Use
  Company Number: JP-ONO-2022JP004349

PATIENT
  Age: 56 Year
  Sex: Female

DRUGS (3)
  1. BRAFTOVI [Suspect]
     Active Substance: ENCORAFENIB
     Indication: Colorectal cancer
     Dosage: 300 MG
     Route: 048
     Dates: start: 20210203, end: 20210629
  2. MEKTOVI [Suspect]
     Active Substance: BINIMETINIB
     Indication: Colorectal cancer
     Dosage: 90 MG
     Route: 048
     Dates: start: 20210203, end: 20210629
  3. ERBITUX [Suspect]
     Active Substance: CETUXIMAB
     Indication: Colorectal cancer
     Dosage: UNK
     Route: 041
     Dates: start: 20210203, end: 20210629

REACTIONS (1)
  - Intestinal perforation [Fatal]

NARRATIVE: CASE EVENT DATE: 20210629
